FAERS Safety Report 5768468-6 (Version None)
Quarter: 2008Q2

REPORT INFORMATION
  Report Type: 
  Country: None (occurrence: None)
  Receive Date: 20080610
  Receipt Date: 20080526
  Transmission Date: 20081010
  Serious: Yes (Hospitalization)
  Sender: FDA-Public Use
  Company Number: DSM-2008-00486

PATIENT
  Age: 79 Year
  Sex: Male

DRUGS (4)
  1. OLMESARTAN MEDOXOMIL [Suspect]
     Indication: HYPERTENSION
     Dosage: 40 MG (40 MG, 1 IN 1 D), ORAL
     Route: 048
     Dates: start: 20070701, end: 20070918
  2. LIPANTHYL (FENOFIBRATE) (160 MILLIGRAM) (FENOFIBRATE) [Concomitant]
  3. KARDEGIC (ACETYLSALICYLATE LYSINE) (75 MILLIGRAM) (ACETYLSALICYLATE LY [Concomitant]
  4. LEXOMIL ROCHE (BROMAZEPAM) (BROMAZEPAM) [Concomitant]

REACTIONS (3)
  - ANGIOEDEMA [None]
  - DYSPHAGIA [None]
  - RESPIRATORY DISORDER [None]
